FAERS Safety Report 8156240-1 (Version None)
Quarter: 2012Q1

REPORT INFORMATION
  Report Type: 
  Country: None (occurrence: None)
  Receive Date: 20120222
  Receipt Date: 20120217
  Transmission Date: 20120608
  Serious: Yes (Other)
  Sender: FDA-Public Use
  Company Number: US-PFIZER INC-2012043640

PATIENT
  Sex: Male
  Weight: 78.9 kg

DRUGS (14)
  1. ATENOLOL [Concomitant]
     Dosage: 25 MG, 1X/DAY
  2. FUROSEMIDE [Concomitant]
     Dosage: 20 MG, 2X/DAY
  3. METOLAZONE [Concomitant]
     Dosage: 2.5 MG
  4. SIMVASTATIN [Concomitant]
     Dosage: 40 MG, 1X/DAY
  5. HYDROXYZINE [Concomitant]
     Dosage: 500 MG, 2X/DAY
  6. MIRALAX [Concomitant]
     Dosage: 17 G, 1X/DAY
  7. GLIPIZIDE [Concomitant]
     Dosage: 10 MG, 2X/DAY
  8. POTASSIUM [Concomitant]
     Dosage: 20 UG, 1X/DAY
  9. ACETYLSALICYLIC ACID [Concomitant]
     Dosage: 325 MG, 1X/DAY
  10. VITAMIN B-12 [Concomitant]
     Dosage: 1000 IU, 1X/DAY
  11. LYRICA [Suspect]
     Indication: DIABETIC NEUROPATHY
     Dosage: 50 MG, 3X/DAY
     Route: 048
     Dates: start: 20120119, end: 20120210
  12. METFORMIN [Concomitant]
     Dosage: 100 MG, 2X/DAY
  13. VITAMIN D [Concomitant]
     Dosage: 100 IU, 1X/DAY
  14. NEXIUM [Concomitant]
     Dosage: UNK

REACTIONS (10)
  - DYSSTASIA [None]
  - BLISTER INFECTED [None]
  - PAIN [None]
  - INCREASED APPETITE [None]
  - DISORIENTATION [None]
  - ACTIVITIES OF DAILY LIVING IMPAIRED [None]
  - READING DISORDER [None]
  - URINARY INCONTINENCE [None]
  - FEELING ABNORMAL [None]
  - VISION BLURRED [None]
